FAERS Safety Report 9537181 (Version 3)
Quarter: 2013Q4

REPORT INFORMATION
  Report Type: Spontaneous
  Country: US (occurrence: US)
  Receive Date: 20130919
  Receipt Date: 20131029
  Transmission Date: 20140711
  Serious: Yes (Hospitalization)
  Sender: FDA-Public Use
  Company Number: US-OTSUKA-US-2013-11724

PATIENT
  Age: 70 Year
  Sex: Male

DRUGS (2)
  1. SAMSCA [Suspect]
     Indication: HYPONATRAEMIA
     Dosage: 30 MG MILLIGRAM(S), QD
  2. SAMSCA [Suspect]
     Dosage: UNK
     Dates: start: 201306

REACTIONS (3)
  - Condition aggravated [Unknown]
  - Hyponatraemia [Unknown]
  - Off label use [Unknown]
